FAERS Safety Report 25732298 (Version 1)
Quarter: 2025Q3

REPORT INFORMATION
  Report Type: Spontaneous
  Country: EU (occurrence: EU)
  Receive Date: 20250827
  Receipt Date: 20250827
  Transmission Date: 20251021
  Serious: Yes (Other)
  Sender: NOVO NORDISK
  Company Number: EU-NOVOPROD-1505866

PATIENT
  Age: 58 Year
  Sex: Male

DRUGS (1)
  1. SAXENDA [Suspect]
     Active Substance: LIRAGLUTIDE
     Indication: Obesity
     Dosage: 3 MG, QD

REACTIONS (3)
  - Abnormal loss of weight [Unknown]
  - Skin laxity [Recovering/Resolving]
  - Facial wasting [Recovering/Resolving]
